FAERS Safety Report 9450053 (Version 2)
Quarter: 2014Q1

REPORT INFORMATION
  Report Type: Spontaneous
  Country: IT (occurrence: IT)
  Receive Date: 20130809
  Receipt Date: 20140320
  Transmission Date: 20141002
  Serious: Yes (Hospitalization)
  Sender: FDA-Public Use
  Company Number: IT-009507513-1308ITA002599

PATIENT
  Age: 83 Year
  Sex: Female

DRUGS (4)
  1. VANTAVO [Suspect]
     Dosage: UNK
     Route: 048
     Dates: start: 20130623, end: 20130704
  2. LOBIVON [Concomitant]
  3. TRIATEC (RAMIPRIL) [Concomitant]
  4. CARDURA [Concomitant]

REACTIONS (1)
  - Atrial fibrillation [Recovering/Resolving]
